FAERS Safety Report 12583218 (Version 1)
Quarter: 2016Q3

REPORT INFORMATION
  Report Type: Spontaneous
  Country: JP (occurrence: JP)
  Receive Date: 20160722
  Receipt Date: 20160722
  Transmission Date: 20161109
  Serious: Yes (Hospitalization, Other)
  Sender: FDA-Public Use
  Company Number: JP-BRISTOL-MYERS SQUIBB COMPANY-BMS-2006-000066

PATIENT
  Age: 67 Year
  Sex: Male

DRUGS (2)
  1. NIVOLUMAB BMS [Suspect]
     Active Substance: NIVOLUMAB
     Dosage: 150 MG, UNK
     Route: 042
     Dates: start: 20160511, end: 20160511
  2. NIVOLUMAB BMS [Suspect]
     Active Substance: NIVOLUMAB
     Indication: NON-SMALL CELL LUNG CANCER RECURRENT
     Dosage: 150 MG, UNK
     Route: 042
     Dates: start: 20160427, end: 20160427

REACTIONS (4)
  - Cell marker increased [Not Recovered/Not Resolved]
  - Dyspnoea [Unknown]
  - Surfactant protein increased [Not Recovered/Not Resolved]
  - Bladder cancer [Unknown]

NARRATIVE: CASE EVENT DATE: 20160510
